FAERS Safety Report 5897933-6 (Version None)
Quarter: 2008Q3

REPORT INFORMATION
  Report Type: 
  Country: None (occurrence: None)
  Receive Date: 20080925
  Receipt Date: 20080919
  Transmission Date: 20090109
  Serious: Yes (Hospitalization)
  Sender: FDA-Public Use
  Company Number: A0684870A

PATIENT
  Age: 59 Year
  Sex: Female
  Weight: 139.1 kg

DRUGS (13)
  1. AVANDIA [Suspect]
     Dosage: 4MG TWICE PER DAY
     Route: 065
     Dates: start: 20060601, end: 20061101
  2. REZULIN [Concomitant]
     Dates: start: 20060801, end: 20061107
  3. MECLIZINE [Concomitant]
  4. GLUCOPHAGE [Concomitant]
  5. GLYBURIDE [Concomitant]
  6. RANITIDINE [Concomitant]
  7. TEMAZEPAM [Concomitant]
  8. LABETALOL HCL [Concomitant]
  9. SERTRALINE [Concomitant]
  10. GEMFIBROZIL [Concomitant]
  11. LOTREL [Concomitant]
  12. TRAMADOL HCL [Concomitant]
  13. LOMOTIL [Concomitant]

REACTIONS (3)
  - CARDIAC DISORDER [None]
  - CARDIAC FAILURE CONGESTIVE [None]
  - HEART INJURY [None]
